FAERS Safety Report 18763820 (Version 1)
Quarter: 2021Q1

REPORT INFORMATION
  Report Type: Spontaneous
  Country: CA (occurrence: CA)
  Receive Date: 20210120
  Receipt Date: 20210120
  Transmission Date: 20210419
  Serious: Yes (Other)
  Sender: FDA-Public Use
  Company Number: CA-ACCORD-214448

PATIENT
  Age: 62 Year
  Sex: Male

DRUGS (11)
  1. MAGNESIUM CITRATE. [Concomitant]
     Active Substance: MAGNESIUM CITRATE
     Dosage: NOT SPECIFIED
  2. CYANOCOBALAMIN. [Concomitant]
     Active Substance: CYANOCOBALAMIN
  3. FLUOROURACIL. [Concomitant]
     Active Substance: FLUOROURACIL
     Dosage: NOT SPECIFIED
  4. LOPERAMIDE [Concomitant]
     Active Substance: LOPERAMIDE
  5. NIACIN. [Concomitant]
     Active Substance: NIACIN
     Dosage: NOT SPECIFIED
  6. FOLINIC ACID [Concomitant]
     Active Substance: LEUCOVORIN
     Dosage: NOT SPECIFIED
  7. RABEPRAZOLE/RABEPRAZOLE SODIUM [Concomitant]
     Active Substance: RABEPRAZOLE SODIUM
     Dosage: NOT SPECIFIED
  8. TAMSULOSIN/TAMSULOSIN HYDROCHLORIDE [Concomitant]
     Active Substance: TAMSULOSIN HYDROCHLORIDE
     Dosage: NOT SPECIFIED
  9. OXALIPLATIN. [Suspect]
     Active Substance: OXALIPLATIN
     Indication: RECTAL CANCER
     Dosage: SOLUTION INTRAVENOUS, STRENGTH?50MG/ 10ML + 100MG/20MLINJECTION?SINGLE USE VIALS
     Route: 042
  10. MACROGOL [Concomitant]
     Active Substance: POLYETHYLENE GLYCOLS
     Dosage: NOT SPECIFIED
  11. SENNOSIDE A+B [Concomitant]
     Active Substance: SENNOSIDES A AND B
     Dosage: NOT SPECIFIED

REACTIONS (7)
  - Anorectal discomfort [Recovered/Resolved]
  - Infusion related reaction [Recovered/Resolved]
  - Oral dysaesthesia [Recovered/Resolved]
  - Feeling hot [Recovered/Resolved]
  - Flushing [Recovered/Resolved]
  - Ocular discomfort [Recovered/Resolved]
  - Throat irritation [Recovered/Resolved]
